FAERS Safety Report 6182510-2 (Version None)
Quarter: 2009Q2

REPORT INFORMATION
  Report Type: 
  Country: None (occurrence: None)
  Receive Date: 20090507
  Receipt Date: 20090429
  Transmission Date: 20091009
  Serious: Yes (Death)
  Sender: FDA-Public Use
  Company Number: GB-ROCHE-630758

PATIENT
  Sex: Female
  Weight: 51.2 kg

DRUGS (10)
  1. CAPECITABINE [Suspect]
     Dosage: DATE OF MOST RECENT ADMINISTRATION OF DRUG: 27 FEBRUARY 2009.
     Route: 048
     Dates: start: 20080619
  2. BEVACIZUMAB [Suspect]
     Dosage: NOT GIVEN POST SURGERY.
     Route: 065
     Dates: start: 20080619
  3. CISPLATIN [Suspect]
     Dosage: DATE OF MOST RECENT ADMINISTRATION OF DRUG: 27 FEBRUARY 2009.
     Route: 042
     Dates: start: 20080619
  4. EPIRUBICIN [Suspect]
     Dosage: DATE OF MOST RECENT ADMINISTRATION OF DRUG: 27 FEBRUARY 2009.
     Route: 042
     Dates: start: 20080619
  5. ASPIRIN [Concomitant]
     Route: 048
     Dates: start: 20081224
  6. BISOPROLOL FUMARATE [Concomitant]
     Route: 048
     Dates: start: 20081024
  7. OMEPRAZOLE [Concomitant]
     Route: 048
     Dates: start: 20080817
  8. NULYTELY [Concomitant]
     Dosage: 1-2 SACHETS DAILY.
     Route: 048
     Dates: start: 20090330
  9. OXYCONTIN [Concomitant]
     Dates: start: 20090408
  10. OXYNORM [Concomitant]
     Dosage: DOSE 5MG/5ML PRN.
     Route: 048
     Dates: start: 20090403

REACTIONS (1)
  - SEPSIS [None]
